FAERS Safety Report 5669472-9 (Version None)
Quarter: 2008Q1

REPORT INFORMATION
  Report Type: 
  Country: None (occurrence: None)
  Receive Date: 20080312
  Receipt Date: 20080312
  Transmission Date: 20080703
  Serious: Yes (Other)
  Sender: FDA-Public Use
  Company Number: None

PATIENT
  Age: 66 Year
  Sex: Female
  Weight: 68.0396 kg

DRUGS (1)
  1. LIPITOR [Suspect]
     Indication: BLOOD CHOLESTEROL INCREASED
     Dosage: 10 MG ONCE A DAY PO ALMOST A YEAR
     Route: 048
     Dates: start: 20070215, end: 20071015

REACTIONS (4)
  - AMNESIA [None]
  - FATIGUE [None]
  - IRRITABLE BOWEL SYNDROME [None]
  - PAIN [None]
